FAERS Safety Report 13275317 (Version 1)
Quarter: 2017Q1

REPORT INFORMATION
  Report Type: Spontaneous
  Country: CA (occurrence: CA)
  Receive Date: 20170228
  Receipt Date: 20170228
  Transmission Date: 20170428
  Serious: Yes (Hospitalization)
  Sender: FDA-Public Use
  Company Number: CA-TEVA-744040ACC

PATIENT
  Age: 8 Year
  Sex: Male
  Weight: 29.96 kg

DRUGS (5)
  1. ABILIFY [Concomitant]
     Active Substance: ARIPIPRAZOLE
  2. ZOLOFT [Concomitant]
     Active Substance: SERTRALINE HYDROCHLORIDE
  3. ADDERALL XR [Concomitant]
     Active Substance: AMPHETAMINE ASPARTATE\AMPHETAMINE SULFATE\DEXTROAMPHETAMINE SACCHARATE\DEXTROAMPHETAMINE SULFATE
  4. TEVA-RISPERIDONE [Suspect]
     Active Substance: RISPERIDONE
     Indication: OPPOSITIONAL DEFIANT DISORDER
  5. TEVA-RISPERIDONE [Suspect]
     Active Substance: RISPERIDONE
     Dosage: .75 MILLIGRAM DAILY;
     Route: 048

REACTIONS (5)
  - Dizziness [Not Recovered/Not Resolved]
  - Aggression [Not Recovered/Not Resolved]
  - Chest pain [Not Recovered/Not Resolved]
  - Violence-related symptom [Not Recovered/Not Resolved]
  - Intentional self-injury [Not Recovered/Not Resolved]
